FAERS Safety Report 5227337-0 (Version None)
Quarter: 2007Q1

REPORT INFORMATION
  Report Type: 
  Country: None (occurrence: None)
  Receive Date: 20070202
  Receipt Date: 20070127
  Transmission Date: 20070707
  Serious: Yes (Other)
  Sender: FDA-Public Use
  Company Number: US-ROCHE-480235

PATIENT
  Age: 51 Year
  Sex: Female

DRUGS (1)
  1. KLONOPIN [Suspect]
     Route: 048
     Dates: start: 20000615, end: 20040615

REACTIONS (3)
  - AMNESIA [None]
  - BRAIN DAMAGE [None]
  - PERSONALITY CHANGE [None]
